FAERS Safety Report 7929500-4 (Version None)
Quarter: 2011Q4

REPORT INFORMATION
  Report Type: 
  Country: None (occurrence: None)
  Receive Date: 20111121
  Receipt Date: 20111116
  Transmission Date: 20120403
  Serious: Yes (Hospitalization)
  Sender: FDA-Public Use
  Company Number: US-SHIRE-ALL1-2011-04519

PATIENT
  Sex: Female
  Weight: 23.356 kg

DRUGS (7)
  1. VYVANSE [Suspect]
     Dosage: 40 MG, 1X/DAY:QD
     Route: 048
     Dates: start: 20111102, end: 20111110
  2. UNSPECIFIED STERIOD [Concomitant]
     Indication: DYSPNOEA
  3. ALBUTEROL [Concomitant]
     Indication: DYSPNOEA
  4. LORATADINE [Concomitant]
     Indication: ALLERGY TO ANIMAL
     Dosage: 10 MG, UNKNOWN
     Route: 048
     Dates: start: 20090101
  5. ALBUTEROL [Concomitant]
     Indication: WHEEZING
     Dosage: UNK UNK, UNKNOWN
     Route: 055
     Dates: start: 20090101
  6. VYVANSE [Suspect]
     Indication: ATTENTION DEFICIT/HYPERACTIVITY DISORDER
     Dosage: 20 MG, 1X/DAY:QD
     Route: 048
     Dates: start: 20111012, end: 20111101
  7. UNSPECIFIED STERIOD [Concomitant]
     Indication: WHEEZING
     Dosage: UNK, UNKNOWN
     Route: 048
     Dates: start: 20090101

REACTIONS (12)
  - PRESSURE OF SPEECH [None]
  - PSYCHOTIC BEHAVIOUR [None]
  - IRRITABILITY [None]
  - AGITATION [None]
  - ANGER [None]
  - INSOMNIA [None]
  - DECREASED APPETITE [None]
  - DRUG EFFECT DECREASED [None]
  - PARANOIA [None]
  - ECHOLALIA [None]
  - PANIC ATTACK [None]
  - INAPPROPRIATE AFFECT [None]
